FAERS Safety Report 5327594-6 (Version None)
Quarter: 2007Q2

REPORT INFORMATION
  Report Type: 
  Country: None (occurrence: None)
  Receive Date: 20070517
  Receipt Date: 20061016
  Transmission Date: 20071010
  Serious: Yes (Other)
  Sender: FDA-Public Use
  Company Number: US-JNJFOC-20061004508

PATIENT
  Age: 32 Year
  Sex: Male

DRUGS (13)
  1. TRAMADOL HCL [Suspect]
     Indication: DRUG USE FOR UNKNOWN INDICATION
  2. DULOXETINE [Suspect]
     Indication: DRUG USE FOR UNKNOWN INDICATION
  3. SEDATIVE/HYPNOTIC [Suspect]
     Indication: DRUG USE FOR UNKNOWN INDICATION
  4. CYCLOBENZAPRINE HCL [Suspect]
     Indication: DRUG USE FOR UNKNOWN INDICATION
  5. BENZODIAZEPINE [Suspect]
     Indication: DRUG USE FOR UNKNOWN INDICATION
  6. CLONIDINE [Suspect]
     Indication: DRUG USE FOR UNKNOWN INDICATION
  7. ANTI-ANXIETY [Suspect]
     Indication: DRUG USE FOR UNKNOWN INDICATION
  8. ANTI-PSYCHOTIC [Suspect]
     Indication: DRUG USE FOR UNKNOWN INDICATION
  9. PROTON-PUMP INHIBITOR [Suspect]
     Indication: DRUG USE FOR UNKNOWN INDICATION
  10. IBUPROFEN [Suspect]
     Indication: DRUG USE FOR UNKNOWN INDICATION
  11. ATYPICAL ANTIPSYCHOTIC [Suspect]
     Indication: DRUG USE FOR UNKNOWN INDICATION
  12. OTHER MISCELLANEOUS PRESCRIPTION MEDICATIONS [Suspect]
     Indication: DRUG USE FOR UNKNOWN INDICATION
  13. OTHER OTC PRODUCTS [Suspect]
     Indication: DRUG USE FOR UNKNOWN INDICATION

REACTIONS (1)
  - DYSKINESIA [None]
